FAERS Safety Report 21609083 (Version 2)
Quarter: 2023Q1

REPORT INFORMATION
  Report Type: Spontaneous
  Country: US (occurrence: US)
  Receive Date: 20221117
  Receipt Date: 20230103
  Transmission Date: 20230417
  Serious: No
  Sender: FDA-Public Use
  Company Number: US-PFIZER INC-202201303310

PATIENT
  Age: 79 Year
  Sex: Male
  Weight: 149.69 kg

DRUGS (1)
  1. SUTENT [Suspect]
     Active Substance: SUNITINIB MALATE
     Indication: Renal cancer
     Dosage: 25 MG

REACTIONS (2)
  - Neoplasm progression [Unknown]
  - COVID-19 [Unknown]
